FAERS Safety Report 5658051-5 (Version None)
Quarter: 2008Q1

REPORT INFORMATION
  Report Type: 
  Country: None (occurrence: None)
  Receive Date: 20080310
  Receipt Date: 20070330
  Transmission Date: 20080703
  Serious: Yes (Hospitalization)
  Sender: FDA-Public Use
  Company Number: US-BAYER-200615006BCC

PATIENT
  Age: 57 Year
  Sex: Female
  Weight: 58 kg

DRUGS (18)
  1. ALEVE [Suspect]
     Indication: ARTHRALGIA
     Dosage: TOTAL DAILY DOSE: 440 MG  UNIT DOSE: 220 MG
     Route: 048
     Dates: start: 20041001
  2. OMEPRAZOLE [Concomitant]
     Indication: PROPHYLAXIS AGAINST GASTROINTESTINAL ULCER
     Dosage: TOTAL DAILY DOSE: 20 MG  UNIT DOSE: 20 MG
     Route: 048
  3. LIPITOR [Concomitant]
     Indication: BLOOD CHOLESTEROL INCREASED
  4. VENLAFAXINE HCL [Concomitant]
     Indication: DEPRESSION
  5. ZANAFLEX [Concomitant]
  6. CALCIUM WITH VITAMIN D [Concomitant]
     Dosage: TOTAL DAILY DOSE: 1200 MG  UNIT DOSE: 600 MG
     Route: 048
  7. MEVACOR [Concomitant]
     Dosage: TOTAL DAILY DOSE: 20 MG  UNIT DOSE: 20 MG
     Route: 048
  8. EFFEXOR [Concomitant]
     Dosage: AS USED: 37.5 MG  UNIT DOSE: 37.5 MG
     Route: 048
  9. FLAX OIL [Concomitant]
  10. VALTREX [Concomitant]
  11. GLUCOSAMINE [Concomitant]
     Dosage: TOTAL DAILY DOSE: 1000 MG  UNIT DOSE: 500 MG
     Route: 048
  12. MAGNESIUM [Concomitant]
     Dosage: TOTAL DAILY DOSE: 200 MG  UNIT DOSE: 200 MG
     Route: 048
  13. SELENIUM [Concomitant]
     Dosage: TOTAL DAILY DOSE: 200 MG  UNIT DOSE: 200 MG
     Route: 048
  14. SHARK CARTILAGE [Concomitant]
     Route: 048
  15. L-LYSINE [Concomitant]
     Dosage: TOTAL DAILY DOSE: 1000 MG  UNIT DOSE: 1000 MG
     Route: 048
  16. CHROMIUM PICOLINATE [Concomitant]
     Dosage: TOTAL DAILY DOSE: 200 MG  UNIT DOSE: 200 MG
     Route: 048
  17. ASCORBIC ACID [Concomitant]
     Dosage: TOTAL DAILY DOSE: 500 MG  UNIT DOSE: 500 MG
  18. LIDODERM [Concomitant]

REACTIONS (10)
  - ANAEMIA [None]
  - EPIGASTRIC DISCOMFORT [None]
  - FAECES DISCOLOURED [None]
  - FATIGUE [None]
  - GASTRIC ULCER HAEMORRHAGE [None]
  - GASTRITIS [None]
  - HAEMATEMESIS [None]
  - HAEMORRHAGE [None]
  - MELAENA [None]
  - PALLOR [None]
